FAERS Safety Report 4288634-9 (Version None)
Quarter: 2004Q1

REPORT INFORMATION
  Report Type: 
  Country: None (occurrence: None)
  Receive Date: 20040205
  Receipt Date: 20040108
  Transmission Date: 20041129
  Serious: Yes (Hospitalization)
  Sender: FDA-Public Use
  Company Number: USA030948132

PATIENT
  Age: 52 Year
  Sex: Female
  Weight: 81 kg

DRUGS (6)
  1. HUMATROPE [Suspect]
     Indication: HYPOPITUITARISM
     Dosage: 0.8 MG/DAY
     Dates: start: 20030801
  2. HUMALOG [Suspect]
     Indication: DIABETES MELLITUS
     Dates: start: 19970101, end: 20030909
  3. PROZAC-WEEKLY (ONCE A WEEK FORMULATION) (FLUOXETINE [Suspect]
     Dosage: 90 MG/WEEK
     Dates: start: 20000101
  4. NOVOLOG [Concomitant]
  5. LANTUS [Concomitant]
  6. TOPROL-XL [Concomitant]

REACTIONS (7)
  - BLOOD GLUCOSE FLUCTUATION [None]
  - DRUG INEFFECTIVE [None]
  - FEELING ABNORMAL [None]
  - HYPOPITUITARISM [None]
  - POST COITAL BLEEDING [None]
  - TREATMENT NONCOMPLIANCE [None]
  - VAGINAL MYCOSIS [None]
